FAERS Safety Report 9707789 (Version 1)
Quarter: 2013Q4

REPORT INFORMATION
  Report Type: Spontaneous
  Country: US (occurrence: None)
  Receive Date: 20131122
  Receipt Date: 20131122
  Transmission Date: 20140711
  Serious: Yes (Hospitalization)
  Sender: FDA-Public Use
  Company Number: None

PATIENT
  Age: 71 Year
  Sex: Male
  Weight: 78 kg

DRUGS (1)
  1. METHOTREXATE [Suspect]
     Route: 048
     Dates: start: 20130708, end: 20130829

REACTIONS (3)
  - Cough [None]
  - Alveolitis allergic [None]
  - Dyspnoea [None]
